FAERS Safety Report 5720380-4 (Version None)
Quarter: 2008Q2

REPORT INFORMATION
  Report Type: 
  Country: None (occurrence: None)
  Receive Date: 20080423
  Receipt Date: 20070606
  Transmission Date: 20081010
  Serious: Yes (Death)
  Sender: FDA-Public Use
  Company Number: 241296

PATIENT
  Age: 67 Year
  Sex: Female
  Weight: 50.3 kg

DRUGS (1)
  1. AVASTIN [Suspect]
     Indication: COLON CANCER
     Dosage: 250 MG, QOW, INTRAVENOUS
     Route: 042
     Dates: start: 20051010, end: 20070301

REACTIONS (1)
  - HAEMORRHAGE [None]
